FAERS Safety Report 7998765-5 (Version None)
Quarter: 2011Q4

REPORT INFORMATION
  Report Type: 
  Country: None (occurrence: None)
  Receive Date: 20111221
  Receipt Date: 20111027
  Transmission Date: 20120403
  Serious: Yes (Other)
  Sender: FDA-Public Use
  Company Number: US-PURDUE-USA-2011-0079818

PATIENT
  Sex: Male

DRUGS (2)
  1. OXYCONTIN [Suspect]
     Indication: NECK PAIN
  2. OXYCONTIN [Suspect]
     Indication: HEADACHE
     Dosage: UNK
     Dates: start: 20011001, end: 20041001

REACTIONS (2)
  - DRUG REHABILITATION [None]
  - SUICIDE ATTEMPT [None]
